FAERS Safety Report 12729512 (Version 1)
Quarter: 2016Q3

REPORT INFORMATION
  Report Type: Spontaneous
  Country: DE (occurrence: DE)
  Receive Date: 20160909
  Receipt Date: 20160909
  Transmission Date: 20161109
  Serious: Yes (Congenital Anomaly)
  Sender: FDA-Public Use
  Company Number: DE-ASTRAZENECA-2016SE95267

PATIENT
  Sex: Female
  Weight: 3.1 kg

DRUGS (4)
  1. SEROQUEL XR [Suspect]
     Active Substance: QUETIAPINE FUMARATE
     Route: 064
     Dates: start: 20150506, end: 20160210
  2. CLOMIFENE [Concomitant]
     Active Substance: CLOMIPHENE
     Route: 064
  3. SERTRALINE [Concomitant]
     Active Substance: SERTRALINE HYDROCHLORIDE
     Route: 064
     Dates: start: 20150506, end: 20150623
  4. FOLIC ACID. [Concomitant]
     Active Substance: FOLIC ACID
     Route: 064

REACTIONS (3)
  - Pneumonia respiratory syncytial viral [Recovered/Resolved]
  - Atrial septal defect [Not Recovered/Not Resolved]
  - Coarctation of the aorta [Recovered/Resolved with Sequelae]
